FAERS Safety Report 10018791 (Version 5)
Quarter: 2014Q2

REPORT INFORMATION
  Report Type: Spontaneous
  Country: US (occurrence: US)
  Receive Date: 20140318
  Receipt Date: 20140514
  Transmission Date: 20141212
  Serious: No
  Sender: FDA-Public Use
  Company Number: US-009507513-1206USA00056

PATIENT
  Sex: Male
  Weight: 89.8 kg

DRUGS (2)
  1. PROPECIA [Suspect]
     Indication: ANDROGENETIC ALOPECIA
     Dosage: 1 MG, QD
     Route: 048
     Dates: start: 20070822, end: 20100911
  2. ROGAINE [Concomitant]
     Indication: ALOPECIA

REACTIONS (20)
  - Cognitive disorder [Not Recovered/Not Resolved]
  - Organic erectile dysfunction [Unknown]
  - Blood testosterone decreased [Unknown]
  - Hypogonadism [Unknown]
  - Amnesia [Not Recovered/Not Resolved]
  - Anxiety [Unknown]
  - Ephelides [Unknown]
  - Nausea [Unknown]
  - Fatigue [Not Recovered/Not Resolved]
  - Vasectomy [Unknown]
  - Disturbance in attention [Unknown]
  - Sexual dysfunction [Not Recovered/Not Resolved]
  - Depression [Unknown]
  - Rash [Unknown]
  - Testicular pain [Unknown]
  - Drug ineffective [Unknown]
  - Libido decreased [Unknown]
  - Hypoaesthesia [Unknown]
  - Seborrhoeic keratosis [Unknown]
  - Solar dermatitis [Unknown]
